FAERS Safety Report 9649089 (Version 1)
Quarter: 2013Q4

REPORT INFORMATION
  Report Type: Spontaneous
  Country: BR (occurrence: BR)
  Receive Date: 20131028
  Receipt Date: 20131028
  Transmission Date: 20140711
  Serious: Yes (Death, Other)
  Sender: FDA-Public Use
  Company Number: PHHY2013BR119815

PATIENT
  Sex: Male

DRUGS (3)
  1. CLOPIDOGREL [Suspect]
  2. ACETYLSALICYLIC ACID [Interacting]
  3. CARVEDILOL [Concomitant]

REACTIONS (3)
  - Gastric ulcer [Fatal]
  - Gastric haemorrhage [Fatal]
  - Drug interaction [None]
